FAERS Safety Report 4957223-2 (Version None)
Quarter: 2006Q1

REPORT INFORMATION
  Report Type: 
  Country: None (occurrence: None)
  Receive Date: 20060329
  Receipt Date: 20050801
  Transmission Date: 20060701
  Serious: Yes (Hospitalization)
  Sender: FDA-Public Use
  Company Number: US-MERCK-0508USA00774

PATIENT
  Age: 62 Year
  Sex: Female

DRUGS (1)
  1. VIOXX [Suspect]
     Indication: BACK PAIN
     Route: 048
     Dates: start: 20020619, end: 20040901

REACTIONS (11)
  - ACUTE RESPIRATORY FAILURE [None]
  - CORONARY ARTERY DISEASE [None]
  - CORONARY ARTERY SURGERY [None]
  - EMPHYSEMA [None]
  - MEDIASTINAL HAEMORRHAGE [None]
  - MYOCARDIAL INFARCTION [None]
  - POST PROCEDURAL HAEMORRHAGE [None]
  - POSTOPERATIVE THROMBOSIS [None]
  - PULMONARY OEDEMA [None]
  - VENTRICULAR DYSFUNCTION [None]
  - VENTRICULAR HYPERTROPHY [None]
